FAERS Safety Report 4736304-2 (Version None)
Quarter: 2005Q3

REPORT INFORMATION
  Report Type: 
  Country: None (occurrence: None)
  Receive Date: 20050802
  Receipt Date: 20050720
  Transmission Date: 20060218
  Serious: Yes (Other)
  Sender: FDA-Public Use
  Company Number: 2005060800

PATIENT
  Sex: Female

DRUGS (12)
  1. DETROL LA [Suspect]
     Indication: INCONTINENCE
     Dosage: 4 MG( 4 MG, 1 IN 1 D), ORAL
     Route: 048
     Dates: start: 20050101
  2. DETROL LA [Suspect]
     Indication: MICTURITION URGENCY
     Dosage: 4 MG( 4 MG, 1 IN 1 D), ORAL
     Route: 048
     Dates: start: 20050101
  3. DETROL LA [Suspect]
     Indication: POLLAKIURIA
     Dosage: 4 MG( 4 MG, 1 IN 1 D), ORAL
     Route: 048
     Dates: start: 20050101
  4. HYDROCHLOROTHIAZIDE          (HYDROCHOORITHIAZIDE) [Suspect]
     Indication: HYPERTENSION
     Dosage: 25  MG (25  MG, 1 IN 1 D), ORAL
     Route: 048
     Dates: start: 20041101
  5. LORAZEPAM [Concomitant]
  6. CARBAMAZEPINE [Concomitant]
  7. LEVOTHYROXINE SODIUM [Concomitant]
  8. FLEXERIL [Concomitant]
  9. TRAZODONE [Concomitant]
  10. LODINE [Concomitant]
  11. WELLBUTRIN XL [Concomitant]
  12. LEXAPRO [Concomitant]

REACTIONS (9)
  - BLOOD PRESSURE DECREASED [None]
  - BLOOD PRESSURE INCREASED [None]
  - CONDITION AGGRAVATED [None]
  - CONSTIPATION [None]
  - DIZZINESS [None]
  - DRY MOUTH [None]
  - MASTOIDITIS [None]
  - TRANSIENT ISCHAEMIC ATTACK [None]
  - TREMOR [None]
